FAERS Safety Report 13590658 (Version 1)
Quarter: 2017Q2

REPORT INFORMATION
  Report Type: Spontaneous
  Country: JP (occurrence: JP)
  Receive Date: 20170530
  Receipt Date: 20170530
  Transmission Date: 20170830
  Serious: Yes (Other)
  Sender: FDA-Public Use
  Company Number: JP-PFIZER INC-2017236808

PATIENT
  Age: 75 Year
  Sex: Female

DRUGS (3)
  1. MEVALOTIN [Suspect]
     Active Substance: PRAVASTATIN SODIUM
     Dosage: UNK
     Route: 048
  2. ALINAMIN F [Suspect]
     Active Substance: FURSULTIAMINE HYDROCHLORIDE
     Dosage: UNK
     Route: 048
  3. AMLODIN [Suspect]
     Active Substance: AMLODIPINE BESYLATE
     Indication: HYPERTENSION
     Dosage: UNK
     Route: 048

REACTIONS (4)
  - Solar dermatitis [Recovered/Resolved]
  - Skin cancer [Unknown]
  - Solar dermatitis [Recovered/Resolved]
  - Drug eruption [Recovering/Resolving]

NARRATIVE: CASE EVENT DATE: 2012
